FAERS Safety Report 23857514 (Version 1)
Quarter: 2024Q2

REPORT INFORMATION
  Report Type: Spontaneous
  Country: IN (occurrence: IN)
  Receive Date: 20240515
  Receipt Date: 20240515
  Transmission Date: 20240715
  Serious: Yes (Other)
  Sender: FDA-Public Use
  Company Number: IN-PFIZER INC-PV202300081288

PATIENT
  Age: 26 Year
  Sex: Female
  Weight: 57.5 kg

DRUGS (1)
  1. CRIZOTINIB [Suspect]
     Active Substance: CRIZOTINIB
     Dosage: 250 MG, 2X/DAY
     Route: 048
     Dates: start: 20230320

REACTIONS (7)
  - Myocardial infarction [Unknown]
  - Vomiting [Unknown]
  - Asthenia [Unknown]
  - Sinus bradycardia [Unknown]
  - Atrioventricular block first degree [Unknown]
  - Haemoglobin decreased [Unknown]
  - Weight decreased [Unknown]

NARRATIVE: CASE EVENT DATE: 20240324
